FAERS Safety Report 7273840-1 (Version None)
Quarter: 2011Q1

REPORT INFORMATION
  Report Type: 
  Country: None (occurrence: None)
  Receive Date: 20110203
  Receipt Date: 20110121
  Transmission Date: 20110831
  Serious: Yes (Hospitalization, Other)
  Sender: FDA-Public Use
  Company Number: US-ELI_LILLY_AND_COMPANY-US201008000570

PATIENT
  Age: 63 Year
  Sex: Male

DRUGS (1)
  1. FORTEO [Suspect]
     Indication: OSTEOPOROSIS
     Dosage: 20 MG, DAILY (1/D)
     Dates: start: 20100101

REACTIONS (9)
  - DYSPNOEA [None]
  - BALANCE DISORDER [None]
  - INFLUENZA LIKE ILLNESS [None]
  - RESPIRATORY DISORDER [None]
  - HEADACHE [None]
  - MYOCARDIAL INFARCTION [None]
  - BONE PAIN [None]
  - CHEST DISCOMFORT [None]
  - ASTHENIA [None]
